FAERS Safety Report 8484683-5 (Version None)
Quarter: 2012Q3

REPORT INFORMATION
  Report Type: 
  Country: None (occurrence: None)
  Receive Date: 20120703
  Receipt Date: 20120426
  Transmission Date: 20120928
  Serious: No
  Sender: FDA-Public Use
  Company Number: US-TEVA-335518USA

PATIENT
  Sex: Female
  Weight: 108.96 kg

DRUGS (5)
  1. NUVIGIL [Suspect]
     Indication: FATIGUE
     Dosage: 150 MILLIGRAM;
     Route: 048
     Dates: start: 20120301
  2. REQUIP [Concomitant]
     Indication: RESTLESS LEGS SYNDROME
  3. TRAMADOL HCL [Concomitant]
     Indication: RESTLESS LEGS SYNDROME
  4. CITALOPRAM HYDROBROMIDE [Concomitant]
     Indication: MOOD SWINGS
  5. WATER PILL [Concomitant]
     Indication: FLUID RETENTION

REACTIONS (3)
  - INTENTIONAL DRUG MISUSE [None]
  - INSOMNIA [None]
  - OFF LABEL USE [None]
